FAERS Safety Report 18643916 (Version 2)
Quarter: 2020Q4

REPORT INFORMATION
  Report Type: Spontaneous
  Country: US (occurrence: US)
  Receive Date: 20201221
  Receipt Date: 20201228
  Transmission Date: 20210114
  Serious: Yes (Hospitalization, Other)
  Sender: FDA-Public Use
  Company Number: US-PFIZER INC-2020494040

PATIENT
  Age: 67 Year
  Sex: Female
  Weight: 113.4 kg

DRUGS (1)
  1. CELEBREX [Suspect]
     Active Substance: CELECOXIB
     Indication: OSTEOARTHRITIS
     Dosage: 200 MG, DAILY (200MG, ONE CAPSULE DAILY BY MOUTH)
     Route: 048

REACTIONS (1)
  - Abdominal hernia [Unknown]
